FAERS Safety Report 10867573 (Version 1)
Quarter: 2015Q1

REPORT INFORMATION
  Report Type: Spontaneous
  Country: US (occurrence: US)
  Receive Date: 20150225
  Receipt Date: 20150225
  Transmission Date: 20150721
  Serious: Yes (Hospitalization, Other)
  Sender: FDA-Public Use
  Company Number: US-BAYER-2015-024541

PATIENT
  Sex: Male

DRUGS (10)
  1. FACTOR VIII [Suspect]
     Active Substance: ANTIHEMOPHILIC FACTOR HUMAN\HUMAN COAGULATION FACTOR VIII/VON WILLEBRAND FACTOR COMPLEX
     Indication: SPONTANEOUS HAEMORRHAGE
     Dosage: UNK
     Route: 042
     Dates: start: 20140312, end: 20140312
  2. CLOPIDOGREL [Concomitant]
     Active Substance: CLOPIDOGREL BISULFATE
     Indication: ANTIPLATELET THERAPY
     Dosage: UNK
  3. ANTIHEMOPHILIC FACTOR VIII (RECOMBINANT), SUCROSE FORMULATED [Suspect]
     Active Substance: ANTIHEMOPHILIC FACTOR, HUMAN RECOMBINANT
     Indication: PROPHYLAXIS
     Dosage: UNK UNK, TIW
     Route: 042
     Dates: start: 201203, end: 201203
  4. ANTIHEMOPHILIC FACTOR VIII (RECOMBINANT), SUCROSE FORMULATED [Suspect]
     Active Substance: ANTIHEMOPHILIC FACTOR, HUMAN RECOMBINANT
     Indication: CORONARY ARTERIAL STENT INSERTION
     Dosage: UNK UNK, QD
     Route: 042
     Dates: start: 201203, end: 201203
  5. BEVACIZUMAB [Concomitant]
     Active Substance: BEVACIZUMAB
     Indication: BLINDNESS
     Dosage: UNK DOSAGE, INTRA-VITREAL INJECTIONS
     Route: 047
     Dates: start: 201110
  6. ANTIHEMOPHILIC FACTOR VIII (RECOMBINANT), SUCROSE FORMULATED [Suspect]
     Active Substance: ANTIHEMOPHILIC FACTOR, HUMAN RECOMBINANT
     Indication: FACTOR VIII DEFICIENCY
     Dosage: UNK
     Route: 042
     Dates: start: 201112, end: 201112
  7. FACTOR VIII [Suspect]
     Active Substance: ANTIHEMOPHILIC FACTOR HUMAN\HUMAN COAGULATION FACTOR VIII/VON WILLEBRAND FACTOR COMPLEX
     Indication: FACTOR VIII DEFICIENCY
     Dosage: UNK
     Route: 042
     Dates: start: 201106, end: 201106
  8. FACTOR VIII [Suspect]
     Active Substance: ANTIHEMOPHILIC FACTOR HUMAN\HUMAN COAGULATION FACTOR VIII/VON WILLEBRAND FACTOR COMPLEX
     Indication: FACTOR VIII DEFICIENCY
     Dosage: UNK
     Route: 042
     Dates: start: 201403, end: 201403
  9. ACETYLSALICYLIC ACID({=100 MG) [Concomitant]
     Active Substance: ASPIRIN
     Indication: ANTIPLATELET THERAPY
     Dosage: UNK
  10. FACTOR VIII [Suspect]
     Active Substance: ANTIHEMOPHILIC FACTOR HUMAN\HUMAN COAGULATION FACTOR VIII/VON WILLEBRAND FACTOR COMPLEX
     Indication: PROPHYLAXIS
     Dosage: UNK
     Route: 042
     Dates: start: 20120514, end: 20120523

REACTIONS (17)
  - Anti factor VIII antibody positive [None]
  - Spontaneous haemorrhage [None]
  - Increased tendency to bruise [None]
  - Angina pectoris [None]
  - Anti factor VIII antibody positive [Recovered/Resolved]
  - Haematuria [Recovered/Resolved]
  - Haemorrhage [Recovered/Resolved]
  - Catheter site haemorrhage [Recovered/Resolved]
  - Haemorrhage [Recovered/Resolved]
  - Thrombosis [Recovered/Resolved]
  - Haemarthrosis [Recovered/Resolved]
  - Anti factor VIII antibody positive [Recovered/Resolved]
  - Retinal haemorrhage [Recovered/Resolved]
  - Haemarthrosis [Recovered/Resolved]
  - Soft tissue haemorrhage [None]
  - Epistaxis [None]
  - Haematuria [None]

NARRATIVE: CASE EVENT DATE: 201203
